FAERS Safety Report 4881744-4 (Version None)
Quarter: 2005Q4

REPORT INFORMATION
  Report Type: 
  Country: None (occurrence: None)
  Receive Date: 20051201
  Receipt Date: 20050720
  Transmission Date: 20060501
  Serious: No
  Sender: FDA-Public Use
  Company Number: 2005PV000586

PATIENT
  Age: 67 Year
  Sex: Female
  Weight: 127.9144 kg

DRUGS (11)
  1. BYETTA [Suspect]
     Indication: DIABETES MELLITUS NON-INSULIN-DEPENDENT
     Dosage: 5 MCG; BID; SC
     Route: 058
     Dates: start: 20050711, end: 20050720
  2. ASPIRIN [Concomitant]
  3. FUROSEMIDE [Concomitant]
  4. SYNTHROID [Concomitant]
  5. METAPROLOL [Concomitant]
  6. NORVASC [Concomitant]
  7. ZOCOR [Concomitant]
  8. COZAAR [Concomitant]
  9. TERAZOSIN [Concomitant]
  10. METFORMIN HCL [Concomitant]
  11. HUMULIN 70/30 [Concomitant]

REACTIONS (1)
  - BLOOD GLUCOSE INCREASED [None]
